FAERS Safety Report 12319512 (Version 1)
Quarter: 2016Q2

REPORT INFORMATION
  Report Type: Spontaneous
  Country: US (occurrence: US)
  Receive Date: 20160429
  Receipt Date: 20160429
  Transmission Date: 20160815
  Serious: No
  Sender: FDA-Public Use
  Company Number: US-ROCHE-1605243

PATIENT
  Sex: Male
  Weight: 127.12 kg

DRUGS (2)
  1. ESBRIET [Suspect]
     Active Substance: PIRFENIDONE
     Dosage: 1 CAPSULE THRICE A DAY
     Route: 048
  2. ESBRIET [Suspect]
     Active Substance: PIRFENIDONE
     Indication: IDIOPATHIC PULMONARY FIBROSIS
     Dosage: 3 CAPSULES THRICE A DAY
     Route: 048
     Dates: start: 20150219

REACTIONS (5)
  - Liver function test increased [Unknown]
  - Blood test abnormal [Unknown]
  - Rash [Unknown]
  - Rash [Recovered/Resolved]
  - Pruritus [Unknown]
